FAERS Safety Report 13011222 (Version 2)
Quarter: 2018Q2

REPORT INFORMATION
  Report Type: Report from Study
  Country: US (occurrence: US)
  Receive Date: 20161208
  Receipt Date: 20180626
  Transmission Date: 20180711
  Serious: Yes (Hospitalization)
  Sender: FDA-Public Use
  Company Number: US-ROCHE-1861255

PATIENT
  Age: 77 Year
  Sex: Male
  Weight: 76.18 kg

DRUGS (42)
  1. ACETAMINOPHEN. [Concomitant]
     Active Substance: ACETAMINOPHEN
     Indication: PREMEDICATION
     Dosage: DOSE ADMINISTERED ONCE ON THE FOLLOWING DAYS 12/OCT/2016, 21/NOV/2016, 28/SEP/2016, 29/SEP/2016, 5/O
     Route: 065
     Dates: start: 20160928, end: 20161121
  2. NORMAL SALINE [Concomitant]
     Active Substance: SODIUM CHLORIDE
     Indication: PREMEDICATION
     Dosage: DOSE ADMINISTERED ONCE ON THE FOLLOWING DAYS 12/OCT/2016, 26/OCT/2016, 05/OCT/2016, 18/JAN/2017, 28/
     Route: 042
     Dates: start: 20161012, end: 20161026
  3. PREDNISONE. [Concomitant]
     Active Substance: PREDNISONE
     Dosage: INDICATION: POSSIBLE RIGHT SIDED INFILTRATES/ADRENAL INSUFFICIENCY
     Route: 065
     Dates: start: 20161113, end: 20161118
  4. PREDNISONE. [Concomitant]
     Active Substance: PREDNISONE
     Route: 065
     Dates: start: 20161219, end: 20161223
  5. ELIQUIS [Concomitant]
     Active Substance: APIXABAN
     Indication: ATRIAL FIBRILLATION
     Route: 065
     Dates: start: 20160802
  6. VITAMIN D3 [Concomitant]
     Active Substance: CHOLECALCIFEROL
     Route: 065
     Dates: start: 20161128
  7. CIALIS [Concomitant]
     Active Substance: TADALAFIL
     Indication: ERECTILE DYSFUNCTION
     Route: 065
     Dates: start: 20060926
  8. PREDNISONE. [Concomitant]
     Active Substance: PREDNISONE
     Route: 065
     Dates: start: 20161223, end: 20161226
  9. MAGNESIUM OXIDE. [Concomitant]
     Active Substance: MAGNESIUM OXIDE
     Indication: HYPOMAGNESAEMIA
     Route: 065
     Dates: start: 20161128
  10. GAMMAGARD [Concomitant]
     Active Substance: HUMAN IMMUNOGLOBULIN G
     Route: 065
     Dates: start: 20161220, end: 20161220
  11. SIMVASTATIN. [Concomitant]
     Active Substance: SIMVASTATIN
     Indication: HYPERLIPIDAEMIA
     Route: 065
     Dates: start: 20121001
  12. HYDROCORTISONE. [Concomitant]
     Active Substance: HYDROCORTISONE
     Dosage: INDICATION: ADRENAL INSUFFICIENCY
     Route: 065
     Dates: start: 20161001, end: 20161108
  13. DESMOPRESSIN ACETATE. [Concomitant]
     Active Substance: DESMOPRESSIN ACETATE
     Indication: THROMBOCYTOPENIA
     Route: 065
     Dates: start: 20121001
  14. MUCINEX [Concomitant]
     Active Substance: GUAIFENESIN
     Indication: RHINITIS ALLERGIC
     Route: 065
     Dates: start: 20161011
  15. FLORINEF ACETATE [Concomitant]
     Active Substance: FLUDROCORTISONE ACETATE
     Dosage: INDICATION: ADDISONS DISEASE
     Route: 065
     Dates: start: 20060926
  16. CALCIUM CARBONATE. [Concomitant]
     Active Substance: CALCIUM CARBONATE
     Indication: GASTROOESOPHAGEAL REFLUX DISEASE
     Route: 065
     Dates: start: 20161128
  17. POTASSIUM CHLORIDE. [Concomitant]
     Active Substance: POTASSIUM CHLORIDE
     Indication: HYPOKALAEMIA
     Route: 065
     Dates: start: 20161128
  18. METHYLPREDNISOLONE. [Concomitant]
     Active Substance: METHYLPREDNISOLONE
     Route: 065
     Dates: start: 20171220, end: 20171220
  19. LEVOFLOXACIN. [Concomitant]
     Active Substance: LEVOFLOXACIN
     Route: 065
     Dates: start: 20161212, end: 20161223
  20. GAMMAGARD [Concomitant]
     Active Substance: HUMAN IMMUNOGLOBULIN G
     Route: 065
     Dates: start: 20170117, end: 20170117
  21. OBINUTUZUMAB. [Suspect]
     Active Substance: OBINUTUZUMAB
     Indication: CHRONIC LYMPHOCYTIC LEUKAEMIA
     Dosage: LAST INFUSION WAS 21/NOV/2016
     Route: 042
     Dates: start: 20160928
  22. DEXAMETHASONE. [Concomitant]
     Active Substance: DEXAMETHASONE
     Indication: PREMEDICATION
     Dosage: DOSE ADMINISTERED ONCE ON THE FOLLOWING DAYS 05/OCT/2016, 21/NOV/2016, 29/SEP/2016, 28/SEP/2016, 29/
     Route: 065
     Dates: start: 20160928, end: 20161121
  23. LEVOFLOXACIN. [Concomitant]
     Active Substance: LEVOFLOXACIN
     Route: 065
     Dates: start: 20161128, end: 20161204
  24. PREDNISONE. [Concomitant]
     Active Substance: PREDNISONE
     Route: 065
     Dates: start: 20161118, end: 20161123
  25. ATORVASTATIN [Concomitant]
     Active Substance: ATORVASTATIN
     Indication: HYPERLIPIDAEMIA
     Route: 065
     Dates: start: 20161127
  26. METHYLPREDNISOLONE. [Concomitant]
     Active Substance: METHYLPREDNISOLONE
     Route: 065
     Dates: start: 20170314, end: 20170314
  27. ACP-196 (BTK INHIBITOR) [Suspect]
     Active Substance: ACALABRUTINIB
     Indication: CHRONIC LYMPHOCYTIC LEUKAEMIA
     Route: 048
     Dates: start: 20160831
  28. SOLU-CORTEF [Concomitant]
     Active Substance: HYDROCORTISONE SODIUM SUCCINATE
     Dosage: POSSIBLE RIGHT SIDED INFILTRATE
     Route: 065
     Dates: start: 20161108, end: 20161110
  29. HYDROCORTISONE. [Concomitant]
     Active Substance: HYDROCORTISONE
     Dosage: INDICATION: POSSIBLE RIGHT SIDED INFILTRATES/ADRENAL INSUFFICIENCY
     Route: 065
     Dates: start: 20161122
  30. TYLENOL [Concomitant]
     Active Substance: ACETAMINOPHEN
     Indication: PROPHYLAXIS
     Route: 065
     Dates: start: 20060926
  31. PREDNISONE. [Concomitant]
     Active Substance: PREDNISONE
     Route: 065
     Dates: start: 20161108, end: 20161112
  32. FLUARIX 2011/2012 [Concomitant]
     Active Substance: INFLUENZA A VIRUS A/CALIFORNIA/7/2009 X-181 (H1N1) ANTIGEN (FORMALDEHYDE INACTIVATED)\INFLUENZA A VIRUS A/VICTORIA/210/2009 X-187 (H3N2) ANTIGEN (FORMALDEHYDE INACTIVATED)\INFLUENZA B VIRUS B/BRISBANE/60/2008 ANTIGEN (FORMALDEHYDE INACTIVATED)\INFLUENZA VIRUS VACCINE
     Route: 065
     Dates: start: 20171009, end: 20171009
  33. DIPHENHYDRAMINE. [Concomitant]
     Active Substance: DIPHENHYDRAMINE
     Indication: PREMEDICATION
     Dosage: DOSE ADMINISTERED ONCE ON THE FOLLOWING DAYS 05/OCT/2016, 21/NOV/2016, 29/SEP/2016, 28/SEP/2016, 12/
     Route: 065
     Dates: start: 20160928, end: 20161121
  34. LEVOFLOXACIN. [Concomitant]
     Active Substance: LEVOFLOXACIN
     Dosage: INDICATION: POSSIBLE RIGHT SIDED INFILTRATE
     Route: 065
     Dates: start: 20161108, end: 20161116
  35. GRANISETRON [Concomitant]
     Active Substance: GRANISETRON
     Indication: PREMEDICATION
     Dosage: DOSE ADMINISTERED ONCE ON THE FOLLOWING DAYS 21/NOV/2016, 29/SEP/2016, 18/JAN/2017
     Route: 065
     Dates: start: 20161026, end: 20161121
  36. GAMMAGARD [Concomitant]
     Active Substance: HUMAN IMMUNOGLOBULIN G
     Route: 065
     Dates: start: 20170314, end: 20170314
  37. NORMAL SALINE [Concomitant]
     Active Substance: SODIUM CHLORIDE
     Route: 042
     Dates: start: 20161026
  38. FAMOTIDINE. [Concomitant]
     Active Substance: FAMOTIDINE
     Indication: PREMEDICATION
     Dosage: DOSE ADMINISTERED ONCE ON THE FOLLOWING DAYS 21/NOV/2016,  26/OCT/2016, 20/DEC/2016, 17/JAN/2017, 18
     Route: 065
     Dates: start: 20161026, end: 20161121
  39. VICODIN [Concomitant]
     Active Substance: ACETAMINOPHEN\HYDROCODONE BITARTRATE
     Indication: PAIN
     Route: 065
     Dates: start: 20060926
  40. PREDNISONE. [Concomitant]
     Active Substance: PREDNISONE
     Route: 065
     Dates: start: 20161212, end: 20161215
  41. PREDNISONE. [Concomitant]
     Active Substance: PREDNISONE
     Route: 065
     Dates: start: 20161216, end: 20161218
  42. ALLOPURINOL. [Concomitant]
     Active Substance: ALLOPURINOL
     Route: 065
     Dates: start: 20170214

REACTIONS (1)
  - Hypoxia [Recovered/Resolved]

NARRATIVE: CASE EVENT DATE: 20161127
